FAERS Safety Report 17873799 (Version 2)
Quarter: 2020Q2

REPORT INFORMATION
  Report Type: Report from Study
  Country: AT (occurrence: AT)
  Receive Date: 20200609
  Receipt Date: 20200609
  Transmission Date: 20200714
  Serious: Yes (Hospitalization)
  Sender: FDA-Public Use
  Company Number: AT-ROCHE-2614978

PATIENT
  Age: 58 Year
  Sex: Male
  Weight: 84.5 kg

DRUGS (9)
  1. NOVALGIN (METAMIZOLE SODIUM) [Concomitant]
     Active Substance: METAMIZOLE SODIUM
     Route: 065
  2. SAROTEN [Concomitant]
     Active Substance: AMITRIPTYLINE
     Route: 065
     Dates: start: 20200420
  3. HALCION [Concomitant]
     Active Substance: TRIAZOLAM
     Route: 065
     Dates: start: 20200420
  4. PASPERTIN [METOCLOPRAMIDE HYDROCHLORIDE] [Concomitant]
     Active Substance: METOCLOPRAMIDE HYDROCHLORIDE
     Route: 065
     Dates: start: 20200511
  5. ATEZOLIZUMAB. [Suspect]
     Active Substance: ATEZOLIZUMAB
     Indication: TRANSITIONAL CELL CARCINOMA
     Dosage: DATE OF MOST RECENT DOSE OF ATEZOLIZUMAB PRIOR TO AE ONSET 11/MAY/2020 AND THE DOSE WAS 1200 MG
     Route: 042
     Dates: start: 20200420
  6. TEMGESIC [Concomitant]
     Active Substance: BUPRENORPHINE HYDROCHLORIDE
     Route: 065
     Dates: start: 20200420
  7. LYRICA [Concomitant]
     Active Substance: PREGABALIN
     Route: 065
     Dates: start: 20200420
  8. DRONABINOL. [Concomitant]
     Active Substance: DRONABINOL
     Route: 065
     Dates: start: 20200511
  9. PANTOLOC [PANTOPRAZOLE] [Concomitant]
     Active Substance: PANTOPRAZOLE SODIUM
     Route: 065
     Dates: start: 20200420

REACTIONS (1)
  - Anaemia [Recovering/Resolving]

NARRATIVE: CASE EVENT DATE: 20200526
